FAERS Safety Report 23178039 (Version 1)
Quarter: 2023Q4

REPORT INFORMATION
  Report Type: Spontaneous
  Country: IT (occurrence: IT)
  Receive Date: 20231113
  Receipt Date: 20231113
  Transmission Date: 20240110
  Serious: Yes (Other)
  Sender: FDA-Public Use
  Company Number: IT-NOVPHSZ-PHHY2018IT002050

PATIENT
  Age: 19 Year
  Sex: Female

DRUGS (38)
  1. BLINATUMOMAB [Suspect]
     Active Substance: BLINATUMOMAB
     Indication: Acute lymphocytic leukaemia
     Dosage: UNK, CYCLIC (ONLY ONE CYCLE   )
     Route: 065
  2. BLINATUMOMAB [Suspect]
     Active Substance: BLINATUMOMAB
     Dosage: ONLY ONE CYCLE
     Route: 065
     Dates: start: 20161220
  3. BLINCYTO [Suspect]
     Active Substance: BLINATUMOMAB
     Indication: Acute lymphocytic leukaemia
     Dosage: UNK
     Route: 042
  4. BUSULFAN [Suspect]
     Active Substance: BUSULFAN
     Indication: Acute lymphocytic leukaemia
     Dosage: 9.6 MG/KG, UNK
     Route: 042
     Dates: start: 20150904
  5. CYCLOPHOSPHAMIDE [Suspect]
     Active Substance: CYCLOPHOSPHAMIDE
     Indication: Acute lymphocytic leukaemia
     Dosage: 1000 MG/M2, QD
     Route: 042
  6. CYCLOPHOSPHAMIDE [Suspect]
     Active Substance: CYCLOPHOSPHAMIDE
     Dosage: 300 MG/M2, QD (CYCLIC DAY -3 TO-1)
     Route: 042
  7. CYTARABINE [Suspect]
     Active Substance: CYTARABINE
     Indication: Acute lymphocytic leukaemia
     Dosage: 2000 MG/M2, BID ((CYCLIC (QL 2H) CYCLE 7))
     Route: 042
  8. CYTARABINE [Suspect]
     Active Substance: CYTARABINE
     Dosage: 75 MG/M2, QD ((CYCLIC (CYCLE 2))
     Route: 042
  9. CYTARABINE [Suspect]
     Active Substance: CYTARABINE
     Dosage: 4000 MG/M2, BID (CYCLIC (QL 2H) CYCLE 7)
     Route: 042
  10. CYTARABINE [Suspect]
     Active Substance: CYTARABINE
     Dosage: 75 MG/M2, QD ((CYCLIC (CYCLE 2 DAY 2-5, 9-12))
     Route: 058
  11. CYTARABINE [Suspect]
     Active Substance: CYTARABINE
     Dosage: UNK
     Route: 058
  12. DEXAMETHASONE SODIUM PHOSPHATE [Suspect]
     Active Substance: DEXAMETHASONE SODIUM PHOSPHATE
     Dosage: 5 MG/M2, CYCLIC (5 UG/KG DAILY, CYCLIC, 5 TO ANC }1.0)
     Route: 048
  13. DEXAMETHASONE SODIUM PHOSPHATE [Suspect]
     Active Substance: DEXAMETHASONE SODIUM PHOSPHATE
     Dosage: 5 MG/M2, CYCLIC (5 UG/KG DAILY, CYCLIC, 5 TO ANC }1.0)
     Route: 048
  14. DEXAMETHASONE SODIUM PHOSPHATE [Suspect]
     Active Substance: DEXAMETHASONE SODIUM PHOSPHATE
     Dosage: 5 MG/M2, CYCLIC (2XDAY, CYCLIC; DAY 1-5, 15-19)
     Route: 042
  15. DEXAMETHASONE SODIUM PHOSPHATE [Suspect]
     Active Substance: DEXAMETHASONE SODIUM PHOSPHATE
     Indication: Acute lymphocytic leukaemia
     Dosage: 5 MG/M2, CYCLIC (CYCLIC DAY 1-5 (CYCLE 2))
     Route: 042
  16. DEXAMETHASONE SODIUM PHOSPHATE [Suspect]
     Active Substance: DEXAMETHASONE SODIUM PHOSPHATE
     Dosage: 10 MG/M2, CYCLIC  (CYCLIC DAY 1-5, 15-19)
     Route: 042
  17. FILGRASTIM [Suspect]
     Active Substance: FILGRASTIM
     Dosage: 10 UG/KG, UNK ((CYCLE 7), 8 TO HARVEST/ANC GREATER THAN 1.0)
     Route: 058
  18. FILGRASTIM [Suspect]
     Active Substance: FILGRASTIM
     Dosage: 5 UG/KG DAILY, CYCLIC, ANC{0.5 TO }1.0 (CYCLE 2)
     Route: 058
  19. FILGRASTIM [Suspect]
     Active Substance: FILGRASTIM
     Indication: Acute lymphocytic leukaemia
     Dosage: 5 UG/KG, QD
     Route: 058
  20. FILGRASTIM [Suspect]
     Active Substance: FILGRASTIM
     Dosage: 5 UG/KG, QD (5 MUG/KG, QD (CYCLIC (CYCLE 2))
     Route: 058
  21. FILGRASTIM [Suspect]
     Active Substance: FILGRASTIM
     Dosage: 5 UG/KG DAILY, CYCLIC (CYCLE 3)
     Route: 058
  22. FILGRASTIM [Suspect]
     Active Substance: FILGRASTIM
     Dosage: 5 UG/KG DAILY, CYCLIC, 5 TO ANC }1.0
     Route: 058
  23. FLUDARABINE [Suspect]
     Active Substance: FLUDARABINE PHOSPHATE
     Indication: Acute lymphocytic leukaemia
     Dosage: 50 MG/M2, QD (DAY 3-4-5)
     Route: 065
     Dates: start: 20150904
  24. LEUCOVORIN [Suspect]
     Active Substance: LEUCOVORIN\LEUCOVORIN CALCIUM
     Indication: Acute lymphocytic leukaemia
     Dosage: UNK
     Route: 042
  25. IDARUBICIN [Suspect]
     Active Substance: IDARUBICIN
     Indication: Acute lymphocytic leukaemia
     Dosage: 12 MG/M2, QD (CYCLIC; DAY1,2 (CYCLE1 AND 2) INFUSION TIME: 30 MIN)
     Route: 042
  26. LENOGRASTIM [Suspect]
     Active Substance: LENOGRASTIM
     Dosage: 10 UG/M2, CYCLIC (CYCLE 7) , 8 TO HARVEST/ANC GREATER THAN 1.0
     Route: 058
  27. LENOGRASTIM [Suspect]
     Active Substance: LENOGRASTIM
     Dosage: 5 UG/KG, QD (CYCLIC, 5 TO ANC } 1.0 )
     Route: 065
  28. LENOGRASTIM [Suspect]
     Active Substance: LENOGRASTIM
     Indication: Acute lymphocytic leukaemia
     Dosage: 5 UG/KG, QD CYCLIC (CYCLE 3)
     Route: 058
  29. LENOGRASTIM [Suspect]
     Active Substance: LENOGRASTIM
     Dosage: 5 UG/KG, QD CYCLIC, ANC{0.5 TO }1.0 (CYCLE 2
     Route: 058
  30. LENOGRASTIM [Suspect]
     Active Substance: LENOGRASTIM
     Dosage: UNK, QD
     Route: 065
  31. MERCAPTOPURINE [Suspect]
     Active Substance: MERCAPTOPURINE
     Indication: Acute lymphocytic leukaemia
     Dosage: 60 MG/M2, QD (CYCLIC DAY 1-14)
     Route: 048
  32. METHOTREXATE [Suspect]
     Active Substance: METHOTREXATE
     Indication: Acute lymphocytic leukaemia
     Dosage: 5000 MG/M2, CYCLIC
     Route: 042
  33. PREDNISONE [Suspect]
     Active Substance: PREDNISONE
     Indication: Acute lymphocytic leukaemia
     Dosage: 20 MG/M2, BID (QL 2 H CYCLIC)
     Route: 048
  34. PREDNISONE [Suspect]
     Active Substance: PREDNISONE
     Dosage: 40 MG/M2, BID ((QL 2 H CYCLIC)
     Route: 048
  35. THIOTEPA [Suspect]
     Active Substance: THIOTEPA
     Indication: Acute lymphocytic leukaemia
     Dosage: 5 MG/KG, UNK (5MG/KG DAY1-2)
     Route: 042
     Dates: start: 20150904
  36. VINCRISTINE SULFATE [Suspect]
     Active Substance: VINCRISTINE SULFATE
     Indication: Acute lymphocytic leukaemia
     Dosage: 1.4 MG/M2, CYCLIC (MAX 2 MG INFUSION TIME: PUSH, DAY 1, 8, 15, 22)
     Route: 042
  37. BESPONSA [Concomitant]
     Active Substance: INOTUZUMAB OZOGAMICIN
     Indication: Product used for unknown indication
     Dosage: UNK
     Route: 065
  38. INOTUZUMAB OZOGAMICIN [Concomitant]
     Active Substance: INOTUZUMAB OZOGAMICIN
     Indication: Product used for unknown indication
     Dosage: UNK
     Route: 065

REACTIONS (4)
  - Neurotoxicity [Recovered/Resolved]
  - Acute lymphocytic leukaemia recurrent [Unknown]
  - Neoplasm recurrence [Unknown]
  - Seizure [Recovered/Resolved]
